FAERS Safety Report 7579505-0 (Version None)
Quarter: 2011Q2

REPORT INFORMATION
  Report Type: 
  Country: None (occurrence: None)
  Receive Date: 20110629
  Receipt Date: 20101022
  Transmission Date: 20111010
  Serious: Yes (Hospitalization, Other)
  Sender: FDA-Public Use
  Company Number: US-BAYER-201027292NA

PATIENT
  Age: 33 Year
  Sex: Female
  Weight: 83.9 kg

DRUGS (29)
  1. LASIX [Concomitant]
     Indication: PRODUCT USED FOR UNKNOWN INDICATION
     Dosage: 20 MG, QD
     Route: 048
  2. LEVAQUIN [Concomitant]
     Indication: PRODUCT USED FOR UNKNOWN INDICATION
     Dosage: 500 MG, QD
     Route: 048
  3. DIGOXIN [Concomitant]
     Dosage: 0.25 MG, UNK
     Dates: start: 20020706
  4. ACCUPRIL [Concomitant]
     Indication: PRODUCT USED FOR UNKNOWN INDICATION
     Dosage: 40 MG, BID
     Route: 048
  5. ZYRTEC [Concomitant]
     Indication: PRODUCT USED FOR UNKNOWN INDICATION
     Dosage: 10 MG, QD
     Route: 048
  6. TIAZAC [Concomitant]
     Indication: PRODUCT USED FOR UNKNOWN INDICATION
     Dosage: 360 MG, QD
     Route: 048
  7. PROTAMINE SULFATE [Concomitant]
     Indication: PRODUCT USED FOR UNKNOWN INDICATION
     Dosage: UNK
     Route: 042
     Dates: start: 20020709, end: 20020709
  8. CEFEPIME [Concomitant]
     Dosage: 1 G, EVERY 12 HRS
     Route: 042
     Dates: start: 20020627, end: 20020704
  9. VANCOMYCIN [Concomitant]
     Dosage: 1 G, QD
     Route: 042
     Dates: start: 20020627, end: 20020711
  10. TRASYLOL [Suspect]
     Indication: CORONARY ARTERY BYPASS
     Dosage: FULL DOSE FOLLOWED BY 50 CC/HOUR
     Route: 042
     Dates: start: 20020709, end: 20020709
  11. REGLAN [Concomitant]
     Indication: PRODUCT USED FOR UNKNOWN INDICATION
     Dosage: 10 MG, QD
     Route: 048
  12. PYRIDOXINE [Concomitant]
     Indication: PRODUCT USED FOR UNKNOWN INDICATION
     Dosage: 50 MG, QD
     Route: 048
  13. PERICIAZINE [Concomitant]
     Indication: PRODUCT USED FOR UNKNOWN INDICATION
     Dosage: 500MG-4 TABLETS/DAY
     Route: 048
  14. DOBUTAMINE HCL [Concomitant]
     Indication: PRODUCT USED FOR UNKNOWN INDICATION
     Dosage: UNK
     Route: 042
     Dates: start: 20020709
  15. ACETAMINOPHEN [Concomitant]
     Dosage: 650 MG, Q4HR AS NEEDED
  16. ACETYLSALICYLIC ACID SRT [Concomitant]
     Dosage: 325 MG, QD
     Route: 048
     Dates: start: 20020706
  17. DOXYCYCLINE [Concomitant]
     Dosage: 100 MG, BID
     Route: 048
     Dates: start: 20020622, end: 20020701
  18. LOVENOX [Concomitant]
     Dosage: 40 MG, UNK
     Route: 058
     Dates: start: 20020702
  19. ETHAMBUTOL [Concomitant]
     Indication: PRODUCT USED FOR UNKNOWN INDICATION
     Dosage: 400 MG, 3 1/2 TABLETS/DAY
     Route: 048
  20. ISONIAZID [Concomitant]
     Indication: PRODUCT USED FOR UNKNOWN INDICATION
     Dosage: 300 MG, QD
     Route: 048
  21. DOBUTAMINE HCL [Concomitant]
     Dosage: UNK
     Route: 042
     Dates: start: 20020705, end: 20020713
  22. PRIMACOR [Concomitant]
     Indication: PRODUCT USED FOR UNKNOWN INDICATION
     Dosage: UNK
     Route: 042
     Dates: start: 20020709
  23. HEPARIN [Concomitant]
     Dosage: PER PROTOCOL
     Route: 042
     Dates: start: 20020705
  24. TRASYLOL [Suspect]
  25. PAXIL [Concomitant]
     Indication: PRODUCT USED FOR UNKNOWN INDICATION
     Dosage: 40 MG, QD
     Route: 048
  26. LEVOPHED [Concomitant]
     Indication: PRODUCT USED FOR UNKNOWN INDICATION
     Dosage: UNK
     Route: 042
     Dates: start: 20020709
  27. HEPARIN [Concomitant]
     Indication: PRODUCT USED FOR UNKNOWN INDICATION
     Dosage: UNK
     Route: 042
     Dates: start: 20020709, end: 20020709
  28. PROTONIX [Concomitant]
     Indication: PRODUCT USED FOR UNKNOWN INDICATION
     Dosage: 40 MG, QD
     Route: 048
  29. RIFAMPIN [Concomitant]
     Dosage: 600 MG, UNK
     Route: 048
     Dates: start: 20020607

REACTIONS (9)
  - PAIN [None]
  - ANXIETY [None]
  - RENAL IMPAIRMENT [None]
  - RENAL FAILURE [None]
  - RENAL INJURY [None]
  - UNEVALUABLE EVENT [None]
  - EMOTIONAL DISTRESS [None]
  - STRESS [None]
  - FEAR [None]
